FAERS Safety Report 4826185-0 (Version None)
Quarter: 2005Q4

REPORT INFORMATION
  Report Type: 
  Country: None (occurrence: None)
  Receive Date: 20051109
  Receipt Date: 20051025
  Transmission Date: 20060501
  Serious: Yes (Hospitalization)
  Sender: FDA-Public Use
  Company Number: 430040M05USA

PATIENT
  Age: 57 Year
  Sex: Female
  Weight: 73.9363 kg

DRUGS (1)
  1. NOVANTRONE [Suspect]
     Indication: MULTIPLE SCLEROSIS
     Dosage: 12 MG/M2, 1 IN 3 MONTHS
     Dates: start: 20021021, end: 20050203

REACTIONS (1)
  - BREAST CANCER FEMALE [None]
